FAERS Safety Report 4957659-X (Version None)
Quarter: 2006Q1

REPORT INFORMATION
  Report Type: 
  Country: None (occurrence: None)
  Receive Date: 20060327
  Receipt Date: 20060313
  Transmission Date: 20060701
  Serious: Yes (Death)
  Sender: FDA-Public Use
  Company Number: 0603018A

PATIENT
  Age: 23 Year
  Sex: Female

DRUGS (1)
  1. SODIUM CHLORIDE 0.9% [Suspect]

REACTIONS (9)
  - CARDIAC ARREST [None]
  - COMPLICATION OF DELIVERY [None]
  - CYANOSIS [None]
  - DRUG EXPOSURE DURING PREGNANCY [None]
  - DYSPNOEA [None]
  - FOAMING AT MOUTH [None]
  - HYPOTENSION [None]
  - POST PROCEDURAL COMPLICATION [None]
  - TACHYCARDIA [None]
